FAERS Safety Report 5264276-3 (Version None)
Quarter: 2007Q1

REPORT INFORMATION
  Report Type: 
  Country: None (occurrence: None)
  Receive Date: 20070309
  Receipt Date: 20070227
  Transmission Date: 20070707
  Serious: Yes (Other)
  Sender: FDA-Public Use
  Company Number: 2007-01033

PATIENT
  Age: 68 Year
  Sex: Female
  Weight: 85.7 kg

DRUGS (5)
  1. KENTERA(WATSON LABORATORIES)(OXYBUTYNIN) TRANSDERMAL PATCH, 3.9MG [Suspect]
     Dosage: 3.9 MG, DAILY, TRANSDERMAL
     Route: 062
  2. METHENAMINE TAB [Suspect]
     Dosage: 1 G, BID, ORAL
     Route: 048
  3. ATORVASTATIN CALCIUM [Concomitant]
  4. BENDROFLUAZIDE (BENDROFLUMETHIAZIDE) [Concomitant]
  5. TRIMETHOPRIM [Concomitant]

REACTIONS (2)
  - EPISTAXIS [None]
  - RETINAL HAEMORRHAGE [None]
